FAERS Safety Report 4405348-2 (Version None)
Quarter: 2004Q3

REPORT INFORMATION
  Report Type: 
  Country: None (occurrence: None)
  Receive Date: 20040715
  Receipt Date: 20040426
  Transmission Date: 20050211
  Serious: Yes (Hospitalization)
  Sender: FDA-Public Use
  Company Number: 2004SE02327

PATIENT
  Age: 76 Year
  Sex: Male

DRUGS (4)
  1. COKENZEN [Suspect]
     Indication: ESSENTIAL HYPERTENSION
     Dosage: 1 DF QD; PO
     Route: 048
     Dates: start: 20030310, end: 20031001
  2. SERC [Concomitant]
     Route: 048
  3. NOCTRAN [Concomitant]
  4. PROPOFOL [Concomitant]

REACTIONS (2)
  - LICHEN PLANUS [None]
  - RASH PAPULAR [None]
